FAERS Safety Report 6694504-9 (Version None)
Quarter: 2010Q2

REPORT INFORMATION
  Report Type: 
  Country: None (occurrence: None)
  Receive Date: 20100423
  Receipt Date: 20100416
  Transmission Date: 20101027
  Serious: Yes (Other)
  Sender: FDA-Public Use
  Company Number: ZA-ASTRAZENECA-2010SE09766

PATIENT
  Age: 59 Year
  Sex: Male
  Weight: 90 kg

DRUGS (4)
  1. CRESTOR [Suspect]
     Route: 048
     Dates: start: 20091001
  2. DISPRIN CV [Concomitant]
     Indication: HYPERTENSION
     Route: 048
     Dates: start: 20100125
  3. NEUROBION [Concomitant]
     Indication: PARAESTHESIA
     Route: 048
     Dates: start: 20100125, end: 20100225
  4. PREXUM PLUS [Concomitant]
     Indication: HYPERTENSION
     Route: 048
     Dates: start: 20090507

REACTIONS (2)
  - HEADACHE [None]
  - LOSS OF CONSCIOUSNESS [None]
